FAERS Safety Report 6865002-4 (Version None)
Quarter: 2010Q3

REPORT INFORMATION
  Report Type: 
  Country: None (occurrence: None)
  Receive Date: 20100721
  Receipt Date: 20080409
  Transmission Date: 20110219
  Serious: No
  Sender: FDA-Public Use
  Company Number: US-PFIZER INC-2008033221

PATIENT
  Sex: Female
  Weight: 58.6 kg

DRUGS (2)
  1. CHANTIX [Suspect]
     Indication: SMOKING CESSATION THERAPY
     Dates: start: 20080407
  2. METHADONE HCL [Concomitant]

REACTIONS (2)
  - JOINT SWELLING [None]
  - LOCAL SWELLING [None]
